FAERS Safety Report 19164053 (Version 2)
Quarter: 2021Q3

REPORT INFORMATION
  Report Type: Spontaneous
  Country: CA (occurrence: GB)
  Receive Date: 20210421
  Receipt Date: 20210701
  Transmission Date: 20211014
  Serious: Yes (Other)
  Sender: FDA-Public Use
  Company Number: GB-ENDO PHARMACEUTICALS INC-2021-002279

PATIENT
  Age: 48 Year
  Sex: Female
  Weight: 92.07 kg

DRUGS (3)
  1. FLUOXETINE HYDROCHLORIDE. [Suspect]
     Active Substance: FLUOXETINE HYDROCHLORIDE
     Indication: MENOPAUSE
  2. FLUOXETINE HYDROCHLORIDE. [Suspect]
     Active Substance: FLUOXETINE HYDROCHLORIDE
     Indication: ILL-DEFINED DISORDER
  3. FLUOXETINE HYDROCHLORIDE. [Suspect]
     Active Substance: FLUOXETINE HYDROCHLORIDE
     Indication: DEPRESSION
     Dosage: 20 UNKNOWN, UNKNOWN
     Route: 048

REACTIONS (9)
  - Hypervigilance [Unknown]
  - Agitation [Unknown]
  - Off label use [Unknown]
  - Time perception altered [Unknown]
  - Restlessness [Unknown]
  - Feeling cold [Unknown]
  - Feeling abnormal [Unknown]
  - Paranoia [Unknown]
  - Crying [Unknown]

NARRATIVE: CASE EVENT DATE: 20210331
